FAERS Safety Report 4840686-0 (Version None)
Quarter: 2005Q4

REPORT INFORMATION
  Report Type: 
  Country: None (occurrence: None)
  Receive Date: 20051130
  Receipt Date: 20051121
  Transmission Date: 20060501
  Serious: Yes (Hospitalization)
  Sender: FDA-Public Use
  Company Number: US-JNJFOC-20051105435

PATIENT
  Sex: Female
  Weight: 90.72 kg

DRUGS (7)
  1. FENTANYL [Suspect]
     Route: 062
     Dates: start: 20050701
  2. FENTANYL [Suspect]
     Route: 062
     Dates: start: 20050701
  3. NEURONTIN [Concomitant]
  4. PERCOCET [Concomitant]
  5. PERCOCET [Concomitant]
     Indication: DEPRESSION
  6. IRON [Concomitant]
  7. PROZAC [Concomitant]
     Indication: DEPRESSION

REACTIONS (6)
  - ANAEMIA [None]
  - APPLICATION SITE ERYTHEMA [None]
  - APPLICATION SITE PRURITUS [None]
  - DRUG INEFFECTIVE [None]
  - GASTROINTESTINAL HAEMORRHAGE [None]
  - HYPERHIDROSIS [None]
